FAERS Safety Report 4677997-8 (Version None)
Quarter: 2005Q2

REPORT INFORMATION
  Report Type: 
  Country: None (occurrence: None)
  Receive Date: 20050531
  Receipt Date: 20050516
  Transmission Date: 20051028
  Serious: Yes (Hospitalization)
  Sender: FDA-Public Use
  Company Number: 2005GB00957

PATIENT
  Age: 64 Year
  Sex: Male

DRUGS (3)
  1. FELODIPINE [Suspect]
     Indication: HYPERTENSION
     Route: 048
     Dates: start: 20050221, end: 20050329
  2. INDOMETHACIN [Concomitant]
     Indication: GOUT
     Route: 065
     Dates: start: 20021129
  3. LANSOPRAZOLE [Concomitant]
     Indication: GOUT
     Route: 065
     Dates: start: 20021129

REACTIONS (3)
  - ABSCESS LIMB [None]
  - CONDITION AGGRAVATED [None]
  - GOUT [None]
